FAERS Safety Report 10256388 (Version 1)
Quarter: 2014Q2

REPORT INFORMATION
  Report Type: Spontaneous
  Country: US (occurrence: US)
  Receive Date: 20140624
  Receipt Date: 20140624
  Transmission Date: 20141212
  Serious: No
  Sender: FDA-Public Use
  Company Number: US-ZOGENIX, INC.-2012ZX000143

PATIENT
  Age: 22 Year
  Sex: Male
  Weight: 121.67 kg

DRUGS (2)
  1. SUMAVEL DOSEPRO [Suspect]
     Indication: HEADACHE
     Dates: start: 20120417, end: 20120417
  2. HYDROCODONE [Concomitant]
     Indication: BACK PAIN
     Route: 048
     Dates: start: 2009

REACTIONS (5)
  - Blood potassium decreased [Unknown]
  - Nausea [Unknown]
  - Dizziness [Unknown]
  - Muscle spasms [Unknown]
  - Wrong drug administered [Recovered/Resolved]
